FAERS Safety Report 21852593 (Version 2)
Quarter: 2024Q4

REPORT INFORMATION
  Report Type: Report from Study
  Country: US (occurrence: US)
  Receive Date: 20230112
  Receipt Date: 20241125
  Transmission Date: 20250114
  Serious: No
  Sender: NOVARTIS
  Company Number: US-002147023-NVSC2023US005113

PATIENT
  Sex: Female

DRUGS (1)
  1. LEQVIO [Suspect]
     Active Substance: INCLISIRAN SODIUM
     Indication: Product used for unknown indication
     Dosage: UNK
     Route: 058

REACTIONS (2)
  - Nightmare [Recovered/Resolved]
  - Headache [Unknown]
